FAERS Safety Report 6253892-8 (Version None)
Quarter: 2009Q3

REPORT INFORMATION
  Report Type: 
  Country: None (occurrence: None)
  Receive Date: 20090702
  Receipt Date: 20090625
  Transmission Date: 20100115
  Serious: Yes (Other)
  Sender: FDA-Public Use
  Company Number: PHEH2009US06667

PATIENT
  Age: 82 Year
  Sex: Female
  Weight: 77.098 kg

DRUGS (3)
  1. EXELON [Suspect]
     Indication: DEMENTIA ALZHEIMER'S TYPE
     Dosage: 4.6 MG, QD
     Route: 062
     Dates: start: 20090601, end: 20090605
  2. LEVOTHYROXINE SODIUM [Concomitant]
  3. DIOVAN [Concomitant]

REACTIONS (3)
  - LOSS OF CONSCIOUSNESS [None]
  - SYNCOPE [None]
  - VOMITING [None]
